FAERS Safety Report 17484087 (Version 2)
Quarter: 2020Q1

REPORT INFORMATION
  Report Type: Spontaneous
  Country: FR (occurrence: FR)
  Receive Date: 20200302
  Receipt Date: 20200324
  Transmission Date: 20200409
  Serious: Yes (Other)
  Sender: FDA-Public Use
  Company Number: FR-MYLANLABS-2020M1021319

PATIENT
  Age: 82 Year
  Sex: Male

DRUGS (2)
  1. TAMSULOSIN MYLAN [Suspect]
     Active Substance: TAMSULOSIN
     Indication: PRODUCT USED FOR UNKNOWN INDICATION
     Dosage: 0.4 MILLIGRAM
  2. RISPERIDONE MYLAN PHARMA 1 MG, COMPRIM? PELLICUL? S?CABLE [Suspect]
     Active Substance: RISPERIDONE
     Indication: PRODUCT USED FOR UNKNOWN INDICATION
     Dosage: 1 DOSAGE FORM, QD

REACTIONS (2)
  - Urinary retention [Recovering/Resolving]
  - Wrong product administered [Recovered/Resolved]
